FAERS Safety Report 14111780 (Version 4)
Quarter: 2018Q2

REPORT INFORMATION
  Report Type: Spontaneous
  Country: US (occurrence: US)
  Receive Date: 20171020
  Receipt Date: 20180510
  Transmission Date: 20180711
  Serious: Yes (Hospitalization, Other)
  Sender: FDA-Public Use
  Company Number: US-PFIZER INC-2017453504

PATIENT
  Age: 16 Year
  Sex: Male

DRUGS (11)
  1. EPINEPHRINE. [Suspect]
     Active Substance: EPINEPHRINE
     Indication: CARDIAC ARREST
     Dosage: 1 MG, UNK, (1:10,000)
     Route: 042
  2. ATROPINE SULFATE. [Suspect]
     Active Substance: ATROPINE SULFATE
     Indication: CARDIAC ARREST
     Dosage: 1 MG, UNK
     Route: 042
  3. VASOPRESSIN. [Suspect]
     Active Substance: VASOPRESSIN
     Indication: CARDIAC ARREST
     Dosage: 40 IU, UNK
  4. ESMOLOL [Suspect]
     Active Substance: ESMOLOL HYDROCHLORIDE
     Indication: TACHYCARDIA
     Dosage: 70 MG, UNK
  5. PHENYLEPHRINE [Suspect]
     Active Substance: PHENYLEPHRINE\PHENYLEPHRINE HYDROCHLORIDE
     Indication: CARDIAC ARREST
     Dosage: UNK
     Route: 041
  6. DIMETHYL SULFOXIDE. [Suspect]
     Active Substance: DIMETHYL SULFOXIDE
     Dosage: UNK
     Route: 050
  7. ONYX [Suspect]
     Active Substance: DEVICE
     Indication: THERAPEUTIC EMBOLISATION
     Dosage: 4.5 ML, UNK
     Route: 013
  8. SODIUM NITROPRUSSIDE. [Concomitant]
     Active Substance: SODIUM NITROPRUSSIDE
     Dosage: 0.8 MG, UNK
     Route: 065
  9. LABETALOL HYDROCHLORIDE. [Suspect]
     Active Substance: LABETALOL HYDROCHLORIDE
     Indication: TACHYCARDIA
     Dosage: 50 MG, UNK
  10. EPINEPHRINE. [Suspect]
     Active Substance: EPINEPHRINE
     Dosage: 1 MG, UNK, (ADDITIONAL BOLUS OF 1 MG OF EPINEPHRINE 1:10,000)
     Route: 040
  11. SODIUM BICARBONATE. [Suspect]
     Active Substance: SODIUM BICARBONATE
     Indication: CARDIAC ARREST
     Dosage: 50 MEQ, UNK

REACTIONS (6)
  - Cardiac arrest [Recovered/Resolved]
  - Bradycardia [Recovered/Resolved]
  - Trigemino-cardiac reflex [Recovered/Resolved]
  - Hypotension [Recovered/Resolved]
  - Tachycardia [Recovered/Resolved]
  - Pulseless electrical activity [Recovered/Resolved]
